FAERS Safety Report 7414813-5 (Version None)
Quarter: 2011Q2

REPORT INFORMATION
  Report Type: 
  Country: None (occurrence: None)
  Receive Date: 20110414
  Receipt Date: 20101221
  Transmission Date: 20111010
  Serious: No
  Sender: FDA-Public Use
  Company Number: A0901003A

PATIENT
  Sex: Female

DRUGS (2)
  1. LUXIQ [Suspect]
     Dosage: 1APP AT NIGHT
     Route: 061
     Dates: start: 20101201
  2. COAL TAR SHAMPOO [Concomitant]

REACTIONS (1)
  - DRY SKIN [None]
